FAERS Safety Report 12500486 (Version 3)
Quarter: 2016Q3

REPORT INFORMATION
  Report Type: Spontaneous
  Country: US (occurrence: US)
  Receive Date: 20160627
  Receipt Date: 20160902
  Transmission Date: 20161109
  Serious: Yes (Hospitalization, Other)
  Sender: FDA-Public Use
  Company Number: US-PFIZER INC-2016311488

PATIENT
  Age: 76 Year
  Sex: Male
  Weight: 88 kg

DRUGS (6)
  1. LISINOPRIL. [Concomitant]
     Active Substance: LISINOPRIL
     Indication: CEREBROVASCULAR ACCIDENT
     Dosage: 2.5 MG, 1X/DAY, ONCE A DAY
     Route: 048
     Dates: start: 201405
  2. LYRICA [Suspect]
     Active Substance: PREGABALIN
     Indication: NEUROPATHY PERIPHERAL
     Dosage: 150 MG, 2X/DAY
     Route: 048
     Dates: start: 2006
  3. ATORVASTATINE [Concomitant]
     Active Substance: ATORVASTATIN
     Indication: CEREBROVASCULAR ACCIDENT
     Dosage: 20 MG, 1X/DAY, ONE IN THE MORNING
     Route: 048
     Dates: start: 201405
  4. LIPITOR [Concomitant]
     Active Substance: ATORVASTATIN CALCIUM
     Indication: CEREBROVASCULAR ACCIDENT
     Dosage: 2.5 MG, 1X/DAY, IN THE MORNING
     Route: 048
     Dates: start: 201405
  5. DIAZEPAM. [Concomitant]
     Active Substance: DIAZEPAM
     Indication: ELECTROLYTE IMBALANCE
     Dosage: 10 MG, 2X/DAY
  6. NORTRIPTYLINE [Concomitant]
     Active Substance: NORTRIPTYLINE
     Indication: ELECTROLYTE IMBALANCE
     Dosage: 2 DF, 1X/DAY (2 BEDTIME)

REACTIONS (6)
  - Hypoaesthesia [Unknown]
  - Cerebrovascular accident [Unknown]
  - Nervousness [Unknown]
  - Erythema [Unknown]
  - Vision blurred [Unknown]
  - Dysgraphia [Unknown]

NARRATIVE: CASE EVENT DATE: 20140505
